FAERS Safety Report 25903529 (Version 1)
Quarter: 2025Q4

REPORT INFORMATION
  Report Type: Report from Study
  Country: US (occurrence: US)
  Receive Date: 20251010
  Receipt Date: 20251010
  Transmission Date: 20260117
  Serious: Yes (Other)
  Sender: ABBVIE
  Company Number: US-ABBVIE-6193097

PATIENT
  Age: 66 Year
  Sex: Female

DRUGS (1)
  1. RINVOQ [Suspect]
     Active Substance: UPADACITINIB
     Indication: Rheumatoid arthritis
     Route: 048
     Dates: start: 20240516

REACTIONS (15)
  - Cataract [Recovering/Resolving]
  - Memory impairment [Recovering/Resolving]
  - Wound complication [Recovering/Resolving]
  - Peripheral swelling [Recovering/Resolving]
  - Nodule [Unknown]
  - Herpes zoster [Unknown]
  - Pain in extremity [Recovering/Resolving]
  - Pain [Recovering/Resolving]
  - Cardiac disorder [Recovering/Resolving]
  - Fall [Recovering/Resolving]
  - Muscle spasms [Recovering/Resolving]
  - Poor quality sleep [Recovering/Resolving]
  - Arthralgia [Recovering/Resolving]
  - Arthropathy [Unknown]
  - Haemoglobin decreased [Recovering/Resolving]

NARRATIVE: CASE EVENT DATE: 20250101
